FAERS Safety Report 14615102 (Version 1)
Quarter: 2018Q1

REPORT INFORMATION
  Report Type: Spontaneous
  Country: FR (occurrence: FR)
  Receive Date: 20180308
  Receipt Date: 20180308
  Transmission Date: 20180509
  Serious: Yes (Other)
  Sender: FDA-Public Use
  Company Number: FR-MERCK KGAA-2043346

PATIENT
  Age: 60 Year
  Sex: Female

DRUGS (1)
  1. NOVOTHYROX [Suspect]
     Active Substance: LEVOTHYROXINE SODIUM
     Indication: POST PROCEDURAL HYPOTHYROIDISM
     Dates: start: 2017

REACTIONS (15)
  - Hypersensitivity [None]
  - Libido decreased [None]
  - Fatigue [None]
  - Loss of personal independence in daily activities [None]
  - Arthralgia [None]
  - Palpitations [None]
  - Impatience [None]
  - Anxiety [None]
  - Aggression [None]
  - Depression [None]
  - Insomnia [None]
  - Hot flush [None]
  - Muscle spasms [None]
  - Asthenia [None]
  - Apathy [None]

NARRATIVE: CASE EVENT DATE: 2017
